FAERS Safety Report 11668670 (Version 1)
Quarter: 2015Q4

REPORT INFORMATION
  Report Type: Spontaneous
  Country: US (occurrence: US)
  Receive Date: 20151027
  Receipt Date: 20151027
  Transmission Date: 20160304
  Serious: No
  Sender: FDA-Public Use
  Company Number: US-ELI_LILLY_AND_COMPANY-US201002003812

PATIENT
  Sex: Female

DRUGS (1)
  1. FORTEO [Suspect]
     Active Substance: TERIPARATIDE
     Indication: OSTEOPOROSIS
     Dosage: 20 UG, DAILY (1/D)
     Route: 065
     Dates: end: 201002

REACTIONS (10)
  - Bone pain [Recovering/Resolving]
  - Asthenia [Recovering/Resolving]
  - Cough [Unknown]
  - Musculoskeletal discomfort [Recovering/Resolving]
  - Influenza [Unknown]
  - Rheumatoid arthritis [Unknown]
  - Myalgia [Recovering/Resolving]
  - Oropharyngeal pain [Unknown]
  - Nasopharyngitis [Unknown]
  - Arthralgia [Recovering/Resolving]
